FAERS Safety Report 16662111 (Version 2)
Quarter: 2020Q1

REPORT INFORMATION
  Report Type: Report from Study
  Country: US (occurrence: US)
  Receive Date: 20190802
  Receipt Date: 20200129
  Transmission Date: 20200409
  Serious: No
  Sender: FDA-Public Use
  Company Number: US-EXELIXIS-CABO-18017720

PATIENT
  Age: 58 Year
  Sex: Female
  Weight: 53.52 kg

DRUGS (35)
  1. IMODIUM A-D [Concomitant]
     Active Substance: LOPERAMIDE HYDROCHLORIDE
  2. ONDANSETRON ODT DRLA [Concomitant]
     Active Substance: ONDANSETRON
  3. NITROFURANTOIN MONO/MA [Concomitant]
  4. GABAPENTIN. [Concomitant]
     Active Substance: GABAPENTIN
  5. TERCONAZOLE. [Concomitant]
     Active Substance: TERCONAZOLE
  6. MOVANTIK [Concomitant]
     Active Substance: NALOXEGOL OXALATE
  7. CABOMETYX [Suspect]
     Active Substance: CABOZANTINIB S-MALATE
     Indication: RENAL CANCER
     Dosage: 60 MG, QD
     Route: 048
  8. SENNA LAXATIVE [Concomitant]
     Active Substance: SENNOSIDES
  9. BUSPIRONE HCL [Concomitant]
     Active Substance: BUSPIRONE HYDROCHLORIDE
  10. IRON [Concomitant]
     Active Substance: IRON
  11. OXYBUTYNIN CHLORIDE. [Concomitant]
     Active Substance: OXYBUTYNIN CHLORIDE
  12. HYDROMORPHONE HCL [Concomitant]
     Active Substance: HYDROMORPHONE HYDROCHLORIDE
  13. ALPRAZOLAM. [Concomitant]
     Active Substance: ALPRAZOLAM
  14. BANOPHEN [Concomitant]
     Active Substance: DIPHENHYDRAMINE HYDROCHLORIDE
  15. SLOW MAG [Concomitant]
     Active Substance: MAGNESIUM CHLORIDE
  16. CLONAZEPAM. [Concomitant]
     Active Substance: CLONAZEPAM
  17. METRONIDAZOLE. [Concomitant]
     Active Substance: METRONIDAZOLE
  18. OLANZAPINE. [Concomitant]
     Active Substance: OLANZAPINE
  19. LEVOTHYROXINE SODIUM. [Concomitant]
     Active Substance: LEVOTHYROXINE SODIUM
  20. ZANTAC [Concomitant]
     Active Substance: RANITIDINE HYDROCHLORIDE
  21. MORPHINE SULFATE. [Concomitant]
     Active Substance: MORPHINE SULFATE
  22. METHADONE HCL [Concomitant]
     Active Substance: METHADONE HYDROCHLORIDE
  23. METHYLPREDNISOLONE. [Concomitant]
     Active Substance: METHYLPREDNISOLONE
  24. TURMERIC [Concomitant]
     Active Substance: HERBALS\TURMERIC
  25. AFINITOR [Concomitant]
     Active Substance: EVEROLIMUS
  26. DICYCLOMINE HCL [Concomitant]
     Active Substance: DICYCLOMINE HYDROCHLORIDE
  27. SULFAMETHOXAZOLE -TRIME [Concomitant]
  28. PROCHLORPERAZINE MALEA [Concomitant]
  29. FUROSEMIDE. [Concomitant]
     Active Substance: FUROSEMIDE
  30. METOCLOPRAMIDE HCL [Concomitant]
     Active Substance: METOCLOPRAMIDE HYDROCHLORIDE
  31. HYDROCODONE BITARTRATE AND ACETAMINOPHEN [Concomitant]
     Active Substance: ACETAMINOPHEN\HYDROCODONE BITARTRATE
  32. GAS-X [Concomitant]
     Active Substance: DIMETHICONE
  33. FLUCONAZOLE. [Concomitant]
     Active Substance: FLUCONAZOLE
  34. POLYETHYLENE GLYCOL [Concomitant]
     Active Substance: POLYETHYLENE GLYCOLS
  35. XANAX [Concomitant]
     Active Substance: ALPRAZOLAM

REACTIONS (9)
  - Abdominal neoplasm [Unknown]
  - Abdominal discomfort [Unknown]
  - Burning sensation [Unknown]
  - Hypertension [Recovered/Resolved]
  - Nausea [Unknown]
  - Blister [Not Recovered/Not Resolved]
  - Frequent bowel movements [Unknown]
  - Abdominal pain upper [Unknown]
  - Hypoaesthesia [Unknown]

NARRATIVE: CASE EVENT DATE: 201812
